FAERS Safety Report 6712940-9 (Version None)
Quarter: 2010Q2

REPORT INFORMATION
  Report Type: 
  Country: None (occurrence: None)
  Receive Date: 20100426
  Receipt Date: 20091223
  Transmission Date: 20101027
  Serious: Yes (Hospitalization)
  Sender: FDA-Public Use
  Company Number: 2009BI013709

PATIENT
  Age: 59 Year
  Sex: Female

DRUGS (4)
  1. TYSABRI [Suspect]
     Indication: MULTIPLE SCLEROSIS
     Dosage: 300 MG; QM; IV
     Route: 042
     Dates: start: 20071130
  2. CON MEDS [Concomitant]
  3. AVONEX [Concomitant]
  4. REBIF [Concomitant]

REACTIONS (2)
  - DYSGRAPHIA [None]
  - URINARY TRACT INFECTION [None]
